FAERS Safety Report 5665166-4 (Version None)
Quarter: 2008Q1

REPORT INFORMATION
  Report Type: 
  Country: None (occurrence: None)
  Receive Date: 20080314
  Receipt Date: 20080306
  Transmission Date: 20080703
  Serious: Yes (Other)
  Sender: FDA-Public Use
  Company Number: GB-PFIZER INC-2008022072

PATIENT
  Age: 57 Year
  Sex: Male

DRUGS (4)
  1. METHYLPREDNISOLONE SODIUM SUCCINATE [Suspect]
  2. AZATHIOPRINE [Suspect]
  3. CYCLOSPORINE [Suspect]
  4. CORTICOSTEROIDS [Suspect]

REACTIONS (5)
  - ACUTE FEBRILE NEUTROPHILIC DERMATOSIS [None]
  - NECROSIS [None]
  - NECROTISING FASCIITIS [None]
  - PYREXIA [None]
  - SKIN NECROSIS [None]
